FAERS Safety Report 18665011 (Version 1)
Quarter: 2020Q4

REPORT INFORMATION
  Report Type: Spontaneous
  Country: DE (occurrence: DE)
  Receive Date: 20201225
  Receipt Date: 20201225
  Transmission Date: 20210114
  Serious: Yes (Hospitalization, Other)
  Sender: FDA-Public Use
  Company Number: DE-TEVA-2020-DE-1860879

PATIENT
  Age: 83 Year
  Sex: Female
  Weight: 100 kg

DRUGS (9)
  1. METOPROLOL. [Suspect]
     Active Substance: METOPROLOL
     Dosage: 1 DOSAGE FORMS DAILY; 95 MG, 0.5-0-0.5-0
  2. AMLODIPINE [Concomitant]
     Active Substance: AMLODIPINE BESYLATE
     Dosage: 5 MILLIGRAM DAILY;  1-0-0-0
  3. JANUVIA [Concomitant]
     Active Substance: SITAGLIPTIN PHOSPHATE
     Dosage: 2 DOSAGE FORMS DAILY; 50 MG, 2-0-0-0
  4. FUROSEMIDE. [Suspect]
     Active Substance: FUROSEMIDE
     Dosage: 1 DOSAGE FORMS DAILY; 40 MG, 0.5-0.5-0-0
  5. LEVOTHYROXINE-NATRIUM [Concomitant]
     Dosage: 500 MILLIGRAM DAILY;  1-0-0-0
  6. XARELTO [Suspect]
     Active Substance: RIVAROXABAN
     Dosage: 15 MILLIGRAM DAILY; 15 MG, 1-0-0-0
  7. RAMIPRIL. [Suspect]
     Active Substance: RAMIPRIL
     Dosage: 10 MILLIGRAM DAILY; 1-0-0-0
  8. METAMIZOL [Concomitant]
     Active Substance: METAMIZOLE SODIUM
     Dosage: 500 MG, AS NEEDED
  9. XIPAMIDE [Suspect]
     Active Substance: XIPAMIDE
     Dosage: .5 DOSAGE FORMS DAILY; 20 MG, 0.5-0-0-0

REACTIONS (6)
  - Renal impairment [Unknown]
  - Impaired healing [Unknown]
  - Oedema peripheral [Unknown]
  - Cardiac failure [Unknown]
  - Condition aggravated [Unknown]
  - Anaemia [Unknown]
